FAERS Safety Report 23922263 (Version 1)
Quarter: 2024Q2

REPORT INFORMATION
  Report Type: Spontaneous
  Country: US (occurrence: None)
  Receive Date: 20240531
  Receipt Date: 20240531
  Transmission Date: 20240716
  Serious: No
  Sender: FDA-Public Use
  Company Number: US-Axsome Therapeutics, Inc.-AXS202404-000496

PATIENT
  Age: 62 Year
  Sex: Male

DRUGS (1)
  1. AUVELITY [Suspect]
     Active Substance: BUPROPION HYDROCHLORIDE\DEXTROMETHORPHAN HYDROBROMIDE
     Indication: Product used for unknown indication
     Dosage: 45/105MG
     Route: 048

REACTIONS (5)
  - Taste disorder [Unknown]
  - Tinnitus [Unknown]
  - Dizziness [Unknown]
  - Constipation [Unknown]
  - Anxiety [Unknown]
